FAERS Safety Report 12433327 (Version 2)
Quarter: 2016Q3

REPORT INFORMATION
  Report Type: Spontaneous
  Country: IE (occurrence: IE)
  Receive Date: 20160603
  Receipt Date: 20160701
  Transmission Date: 20161109
  Serious: Yes (Other)
  Sender: FDA-Public Use
  Company Number: IE-ELI_LILLY_AND_COMPANY-IE201605010036

PATIENT
  Sex: Male

DRUGS (1)
  1. ZYPADHERA [Suspect]
     Active Substance: OLANZAPINE PAMOATE
     Indication: PRODUCT USED FOR UNKNOWN INDICATION
     Dosage: 300 MG, UNKNOWN
     Route: 030
     Dates: start: 201512

REACTIONS (7)
  - Blood pressure increased [Unknown]
  - Sedation [Unknown]
  - Lower respiratory tract infection [Unknown]
  - Confusional state [Unknown]
  - Feeling abnormal [Unknown]
  - Disorientation [Unknown]
  - Slow speech [Unknown]
